FAERS Safety Report 9403454 (Version 1)
Quarter: 2013Q3

REPORT INFORMATION
  Report Type: Spontaneous
  Country: US (occurrence: US)
  Receive Date: 20130716
  Receipt Date: 20130716
  Transmission Date: 20140515
  Serious: Yes (Other)
  Sender: FDA-Public Use
  Company Number: US-FRI-1000046685

PATIENT
  Sex: Female

DRUGS (2)
  1. LINZESS [Suspect]
     Dosage: 290 MCG
     Route: 048
     Dates: start: 20130122
  2. GLYBURIDE [Concomitant]
     Indication: DIABETES MELLITUS

REACTIONS (2)
  - Hypoglycaemia [Unknown]
  - Hyperglycaemia [Unknown]
